FAERS Safety Report 23546012 (Version 1)
Quarter: 2024Q1

REPORT INFORMATION
  Report Type: Spontaneous
  Country: US (occurrence: US)
  Receive Date: 20240220
  Receipt Date: 20240220
  Transmission Date: 20240410
  Serious: Yes (Hospitalization)
  Sender: FDA-Public Use
  Company Number: US-MYLANLABS-2024M1014533

PATIENT
  Age: 51 Year
  Sex: Female

DRUGS (1)
  1. LYRICA [Suspect]
     Active Substance: PREGABALIN
     Indication: Product used for unknown indication
     Dosage: UNK
     Route: 065

REACTIONS (15)
  - Gastric bypass [Unknown]
  - Pharyngitis streptococcal [Recovering/Resolving]
  - Sinusitis [Recovering/Resolving]
  - Herpes zoster [Unknown]
  - Gastrooesophageal reflux disease [Unknown]
  - COVID-19 [Unknown]
  - General physical health deterioration [Unknown]
  - Loss of personal independence in daily activities [Unknown]
  - Unevaluable event [Unknown]
  - Ear discomfort [Unknown]
  - Depression [Unknown]
  - Weight increased [Unknown]
  - Asthenia [Unknown]
  - Fibromyalgia [Unknown]
  - Hypertension [Unknown]

NARRATIVE: CASE EVENT DATE: 20141001
